FAERS Safety Report 8054968-5 (Version None)
Quarter: 2012Q1

REPORT INFORMATION
  Report Type: 
  Country: None (occurrence: None)
  Receive Date: 20120119
  Receipt Date: 20120106
  Transmission Date: 20120608
  Serious: Yes (Death, Hospitalization)
  Sender: FDA-Public Use
  Company Number: US-PFIZER INC-2012004966

PATIENT
  Sex: Male
  Weight: 77.098 kg

DRUGS (2)
  1. VFEND [Suspect]
     Indication: PULMONARY MYCOSIS
     Dosage: UNK, 2X/DAY
     Route: 048
     Dates: start: 20110101, end: 20111218
  2. PREDNISONE [Concomitant]
     Dosage: 20 MG, UNK

REACTIONS (4)
  - DYSPNOEA [None]
  - CONDITION AGGRAVATED [None]
  - DRUG INEFFECTIVE [None]
  - PULMONARY MYCOSIS [None]
